FAERS Safety Report 23148578 (Version 1)
Quarter: 2023Q4

REPORT INFORMATION
  Report Type: Report from Study
  Country: PE (occurrence: PE)
  Receive Date: 20231106
  Receipt Date: 20231106
  Transmission Date: 20240110
  Serious: Yes (Hospitalization)
  Sender: FDA-Public Use
  Company Number: PE-AMGEN-PERSL2023195039

PATIENT
  Age: 49 Year
  Sex: Female

DRUGS (1)
  1. ADALIMUMAB [Suspect]
     Active Substance: ADALIMUMAB\ISOPROPYL ALCOHOL
     Indication: Rheumatoid arthritis
     Dosage: 40 MILLIGRAM/0.8 ML, Q2WK (EVERY 15 DAYS)
     Route: 058
     Dates: start: 20230215, end: 20231023

REACTIONS (5)
  - Haemorrhage [Unknown]
  - Pain in extremity [Unknown]
  - Thrombocytopenia [Unknown]
  - Anaemia [Unknown]
  - Leukopenia [Unknown]

NARRATIVE: CASE EVENT DATE: 20231021
